FAERS Safety Report 6998482-4 (Version None)
Quarter: 2010Q3

REPORT INFORMATION
  Report Type: 
  Country: None (occurrence: None)
  Receive Date: 20100920
  Receipt Date: 20100426
  Transmission Date: 20110219
  Serious: No
  Sender: FDA-Public Use
  Company Number: US-ASTRAZENECA-2007UW03773

PATIENT
  Age: 378 Month
  Sex: Female
  Weight: 108.9 kg

DRUGS (20)
  1. SEROQUEL [Suspect]
     Indication: SLEEP DISORDER
     Route: 048
     Dates: start: 19990101
  2. SEROQUEL [Suspect]
     Indication: INSOMNIA
     Route: 048
     Dates: start: 19990101
  3. SEROQUEL [Suspect]
     Indication: DEPRESSION
     Route: 048
     Dates: start: 19990101
  4. SEROQUEL [Suspect]
     Indication: ANXIETY
     Route: 048
     Dates: start: 19990101
  5. SEROQUEL [Suspect]
     Route: 048
     Dates: start: 20010823, end: 20060406
  6. SEROQUEL [Suspect]
     Route: 048
     Dates: start: 20010823, end: 20060406
  7. SEROQUEL [Suspect]
     Route: 048
     Dates: start: 20010823, end: 20060406
  8. SEROQUEL [Suspect]
     Route: 048
     Dates: start: 20010823, end: 20060406
  9. SEROQUEL [Suspect]
     Dosage: 25 MG TO 600 MG DAILY
     Route: 048
     Dates: start: 20010823
  10. SEROQUEL [Suspect]
     Dosage: 25 MG TO 600 MG DAILY
     Route: 048
     Dates: start: 20010823
  11. SEROQUEL [Suspect]
     Dosage: 25 MG TO 600 MG DAILY
     Route: 048
     Dates: start: 20010823
  12. SEROQUEL [Suspect]
     Dosage: 25 MG TO 600 MG DAILY
     Route: 048
     Dates: start: 20010823
  13. DEPAKOTE [Concomitant]
     Dates: start: 20010725
  14. DEPAKOTE [Concomitant]
     Dosage: 500- 1500 MG
     Dates: start: 20010701, end: 20010801
  15. AMBIEN [Concomitant]
     Indication: INSOMNIA
     Dosage: 5 MG TO 10 MG AT NIGHT DAILY
     Dates: start: 20010625
  16. PROZAC [Concomitant]
     Dosage: 20 MG TO 40 MG DAILY
     Dates: start: 20010806
  17. TRAZODONE HCL [Concomitant]
     Dosage: 25 MG TO 50 MG DAILY
     Dates: start: 20010827
  18. REMERON [Concomitant]
     Dates: start: 20010621
  19. WELLBUTRIN [Concomitant]
     Dosage: 150 MG TO 450 MG
     Dates: start: 20060301, end: 20061001
  20. LEXAPRO [Concomitant]
     Dosage: 10 MG
     Dates: start: 20060801

REACTIONS (4)
  - GALLBLADDER DISORDER [None]
  - REPRODUCTIVE TRACT DISORDER [None]
  - TACHYCARDIA [None]
  - TYPE 2 DIABETES MELLITUS [None]
